FAERS Safety Report 4693474-2 (Version None)
Quarter: 2005Q2

REPORT INFORMATION
  Report Type: 
  Country: None (occurrence: None)
  Receive Date: 20050615
  Receipt Date: 20050602
  Transmission Date: 20051028
  Serious: Yes (Hospitalization, Other)
  Sender: FDA-Public Use
  Company Number: 2005085471

PATIENT
  Age: 45 Year
  Sex: Female
  Weight: 79.3795 kg

DRUGS (1)
  1. BEXTRA [Suspect]
     Indication: ARTHRITIS
     Dosage: 10 MG, 1 IN 1 D, ORAL
     Route: 048
     Dates: start: 20020601, end: 20020101

REACTIONS (9)
  - DRUG EFFECT DECREASED [None]
  - FEELING HOT [None]
  - HAEMORRHAGE [None]
  - HYPERHIDROSIS [None]
  - HYSTERECTOMY [None]
  - MALAISE [None]
  - RASH [None]
  - SKIN DISCOLOURATION [None]
  - SKIN IRRITATION [None]
